FAERS Safety Report 7563533-5 (Version None)
Quarter: 2011Q2

REPORT INFORMATION
  Report Type: 
  Country: None (occurrence: None)
  Receive Date: 20110615
  Receipt Date: 20110601
  Transmission Date: 20111010
  Serious: Yes (Life-Threatening, Hospitalization, Disabling)
  Sender: FDA-Public Use
  Company Number: 1000020285

PATIENT
  Age: 58 Year
  Sex: Female
  Weight: 57.2 kg

DRUGS (8)
  1. ASA (ACETYLSALICYLIC ACID) (ACETYLSALICYLIC ACID) [Concomitant]
  2. CALCIUM (CALCIUM) (CALCIUM) [Concomitant]
  3. FOSAVANCE (ALENDRONIC ACID, CHOLECALCIFEROL) (TABLETS) (ALENDRONIC ACI [Concomitant]
  4. MAGNESIUM (MAGNESIUM) (MAGNESIUM) [Concomitant]
  5. ALCOHOL (ETHANOL) (ETHANOL) [Concomitant]
  6. VITAMIN-D (ERGOCALCIFEROL) (ERGOCALCIFEROL) [Concomitant]
  7. ESCITALOPRAM [Suspect]
     Indication: ANXIETY
     Dosage: 10 MG (10 MG, 1 IN 1 D), ORAL
     Route: 048
     Dates: start: 20090629, end: 20091215
  8. ELTROXIN (LEVOTHYROXINE SODIUM) (TABLETS) (LEVOTHYROXINE SODIUM) [Concomitant]

REACTIONS (2)
  - ATRIAL FIBRILLATION [None]
  - PRESYNCOPE [None]
